FAERS Safety Report 11183493 (Version 3)
Quarter: 2015Q3

REPORT INFORMATION
  Report Type: Report from Study
  Country: BR (occurrence: BR)
  Receive Date: 20150612
  Receipt Date: 20150917
  Transmission Date: 20151125
  Serious: Yes (Hospitalization, Other)
  Sender: FDA-Public Use
  Company Number: BR-ROCHE-1383443

PATIENT
  Sex: Male
  Weight: 75 kg

DRUGS (3)
  1. NIMESULIDE [Concomitant]
     Active Substance: NIMESULIDE
  2. MABTHERA [Suspect]
     Active Substance: RITUXIMAB
     Indication: RHEUMATOID ARTHRITIS
     Dosage: ON 26/MAR/2014, RECEIVED MOST RECENT DOSE PRIOR TO EVENT
     Route: 042
     Dates: start: 20091201, end: 20140326
  3. CAPTOPRIL. [Concomitant]
     Active Substance: CAPTOPRIL

REACTIONS (10)
  - Enteritis infectious [Unknown]
  - Diarrhoea [Recovered/Resolved]
  - Orchitis [Recovering/Resolving]
  - Malaise [Recovered/Resolved]
  - Hypoaesthesia [Not Recovered/Not Resolved]
  - Crohn^s disease [Recovering/Resolving]
  - Gastrointestinal disorder [Unknown]
  - Headache [Recovered/Resolved]
  - Pain [Not Recovered/Not Resolved]
  - Abdominal pain upper [Recovered/Resolved]
